FAERS Safety Report 14316966 (Version 1)
Quarter: 2017Q4

REPORT INFORMATION
  Report Type: Report from Study
  Country: CA (occurrence: CA)
  Receive Date: 20171222
  Receipt Date: 20171222
  Transmission Date: 20180321
  Serious: Yes (Hospitalization)
  Sender: FDA-Public Use
  Company Number: CA-TAKEDA-2016TUS015146

PATIENT
  Age: 24 Year
  Sex: Male

DRUGS (7)
  1. STELARA [Concomitant]
     Active Substance: USTEKINUMAB
     Dosage: UNK
  2. VEDOLIZUMAB [Suspect]
     Active Substance: VEDOLIZUMAB
     Dosage: 300 MG, Q4WEEKS
     Route: 042
     Dates: start: 20161202, end: 20171116
  3. IRON [Concomitant]
     Active Substance: IRON
     Indication: SUPPLEMENTATION THERAPY
     Dosage: UNK
  4. CIPROFLOXACIN. [Concomitant]
     Active Substance: CIPROFLOXACIN
     Indication: ANAL ABSCESS
     Dosage: UNK
     Dates: end: 20160907
  5. METRONIDAZOLE. [Concomitant]
     Active Substance: METRONIDAZOLE
     Indication: ANAL ABSCESS
     Dosage: UNK
     Dates: end: 20160907
  6. VEDOLIZUMAB [Suspect]
     Active Substance: VEDOLIZUMAB
     Indication: CROHN^S DISEASE
     Dosage: 300 MG, UNK
     Route: 042
     Dates: start: 20160720, end: 20161104
  7. ENTOCORT [Concomitant]
     Active Substance: BUDESONIDE
     Dosage: UNK

REACTIONS (21)
  - Decreased appetite [Unknown]
  - Frequent bowel movements [Unknown]
  - Pain [Unknown]
  - Weight decreased [Unknown]
  - Clostridium difficile infection [Unknown]
  - Anal fistula [Unknown]
  - Abdominal discomfort [Unknown]
  - Off label use [Unknown]
  - Anal abscess [Not Recovered/Not Resolved]
  - Defaecation urgency [Unknown]
  - Diarrhoea [Not Recovered/Not Resolved]
  - Aphthous ulcer [Unknown]
  - Disturbance in attention [Unknown]
  - Nausea [Unknown]
  - Crohn^s disease [Unknown]
  - Abdominal pain [Unknown]
  - Haematochezia [Unknown]
  - Memory impairment [Unknown]
  - Malaise [Unknown]
  - Fatigue [Unknown]
  - Frequent bowel movements [Unknown]

NARRATIVE: CASE EVENT DATE: 2016
